FAERS Safety Report 13563611 (Version 4)
Quarter: 2017Q2

REPORT INFORMATION
  Report Type: Spontaneous
  Country: PL (occurrence: PL)
  Receive Date: 20170519
  Receipt Date: 20170621
  Transmission Date: 20170830
  Serious: Yes (Hospitalization)
  Sender: FDA-Public Use
  Company Number: PL-ROCHE-1937093

PATIENT
  Age: 64 Year
  Sex: Female
  Weight: 65 kg

DRUGS (6)
  1. VILPIN COMBI [Concomitant]
     Indication: PRODUCT USED FOR UNKNOWN INDICATION
     Dosage: 10+10
     Route: 048
  2. PROPRANOLOL [Concomitant]
     Active Substance: PROPRANOLOL HYDROCHLORIDE
     Indication: PRODUCT USED FOR UNKNOWN INDICATION
     Route: 048
  3. ACTILYSE [Suspect]
     Active Substance: ALTEPLASE
     Route: 042
     Dates: start: 20170511, end: 20170511
  4. BETASERC [Concomitant]
     Active Substance: BETAHISTINE
     Indication: PRODUCT USED FOR UNKNOWN INDICATION
     Route: 048
  5. ACTILYSE [Suspect]
     Active Substance: ALTEPLASE
     Indication: THROMBOTIC CEREBRAL INFARCTION
     Route: 042
     Dates: start: 20170511, end: 20170511
  6. GLUCOPHAGE [Concomitant]
     Active Substance: METFORMIN HYDROCHLORIDE
     Indication: PRODUCT USED FOR UNKNOWN INDICATION
     Route: 048

REACTIONS (1)
  - Angioedema [Recovered/Resolved]

NARRATIVE: CASE EVENT DATE: 20170511
